FAERS Safety Report 17817618 (Version 1)
Quarter: 2020Q2

REPORT INFORMATION
  Report Type: Spontaneous
  Country: CA (occurrence: CA)
  Receive Date: 20200522
  Receipt Date: 20200522
  Transmission Date: 20200714
  Serious: Yes (Hospitalization, Disabling, Other)
  Sender: FDA-Public Use
  Company Number: CA-TEVA-2020-CA-1238421

PATIENT
  Age: 14 Year
  Sex: Female
  Weight: 78 kg

DRUGS (26)
  1. CEFTAZIDIME. [Concomitant]
     Active Substance: CEFTAZIDIME
  2. DIMENHYDRINATE. [Concomitant]
     Active Substance: DIMENHYDRINATE
  3. ZINECARD [Concomitant]
     Active Substance: DEXRAZOXANE HYDROCHLORIDE
  4. AMG 479 [Concomitant]
     Active Substance: GANITUMAB
  5. ENOXAPARIN [Concomitant]
     Active Substance: ENOXAPARIN
  6. MESNA. [Concomitant]
     Active Substance: MESNA
  7. VINCRISTINE SULFATE. [Concomitant]
     Active Substance: VINCRISTINE SULFATE
  8. AMITRIPTYLINE [Concomitant]
     Active Substance: AMITRIPTYLINE
  9. CYCLOPHOSPHAMIDE. [Concomitant]
     Active Substance: CYCLOPHOSPHAMIDE
  10. POLYETHYLENE GLYCOL [Concomitant]
     Active Substance: POLYETHYLENE GLYCOLS
  11. MACROGOL [Concomitant]
     Active Substance: POLYETHYLENE GLYCOLS
  12. MEDROXYPROGESTERONE [Concomitant]
     Active Substance: MEDROXYPROGESTERONE
  13. GABAPENTIN. [Concomitant]
     Active Substance: GABAPENTIN
  14. VANCOMYCIN [Concomitant]
     Active Substance: VANCOMYCIN
  15. ACETAMINOPHEN. [Concomitant]
     Active Substance: ACETAMINOPHEN
  16. DOCUSATE SODIUM. [Concomitant]
     Active Substance: DOCUSATE SODIUM
  17. ETOPOSIDE. [Concomitant]
     Active Substance: ETOPOSIDE
  18. GRANULOCYTE COLONY STIMULATING FACTOR [Concomitant]
     Active Substance: GRANULOCYTE COLONY-STIMULATING FACTOR NOS
  19. METOCLOPRAMIDE. [Concomitant]
     Active Substance: METOCLOPRAMIDE
  20. DIPHENHYDRAMINE. [Concomitant]
     Active Substance: DIPHENHYDRAMINE
  21. DOCUSATE [Concomitant]
     Active Substance: DOCUSATE
  22. FILGRASTIM [Concomitant]
     Active Substance: FILGRASTIM
  23. IFOSFAMIDE. [Concomitant]
     Active Substance: IFOSFAMIDE
  24. ONDANSETRON [Concomitant]
     Active Substance: ONDANSETRON
  25. DOXORUBICIN HYDROCHLORIDE. [Suspect]
     Active Substance: DOXORUBICIN HYDROCHLORIDE
     Indication: EWING^S SARCOMA
     Route: 042
  26. LORAZEPAM. [Concomitant]
     Active Substance: LORAZEPAM

REACTIONS (1)
  - Flagellate dermatitis [Not Recovered/Not Resolved]
